FAERS Safety Report 9143632 (Version 3)
Quarter: 2013Q2

REPORT INFORMATION
  Report Type: Spontaneous
  Country: IE (occurrence: IE)
  Receive Date: 20130306
  Receipt Date: 20130409
  Transmission Date: 20140414
  Serious: Yes (Life-Threatening, Hospitalization)
  Sender: FDA-Public Use
  Company Number: IE-ROCHE-1198324

PATIENT
  Age: 54 Year
  Sex: Male
  Weight: 110 kg

DRUGS (5)
  1. ROACTEMRA [Suspect]
     Indication: RHEUMATOID ARTHRITIS
     Route: 042
     Dates: start: 20090826
  2. ROACTEMRA [Suspect]
     Route: 042
     Dates: start: 20120417
  3. ROACTEMRA [Suspect]
     Route: 042
     Dates: start: 20120710
  4. ROACTEMRA [Suspect]
     Route: 042
     Dates: start: 20120927
  5. ROACTEMRA [Suspect]
     Route: 042
     Dates: start: 20121122

REACTIONS (1)
  - Myocardial infarction [Recovering/Resolving]
